FAERS Safety Report 5024112-7 (Version None)
Quarter: 2006Q2

REPORT INFORMATION
  Report Type: 
  Country: None (occurrence: None)
  Receive Date: 20060607
  Receipt Date: 20060525
  Transmission Date: 20061013
  Serious: Yes (Hospitalization, Other)
  Sender: FDA-Public Use
  Company Number: 200613687BWH

PATIENT
  Age: 56 Year
  Sex: Male

DRUGS (2)
  1. SORAFENIB [Suspect]
     Indication: OLIGODENDROGLIOMA
     Dosage: 800 MG, ONCE, ORAL; SEE IMAGE
     Route: 048
     Dates: start: 20060411, end: 20060420
  2. SORAFENIB [Suspect]
     Indication: OLIGODENDROGLIOMA
     Dosage: 800 MG, ONCE, ORAL; SEE IMAGE
     Route: 048
     Dates: start: 20060410

REACTIONS (5)
  - ABDOMINAL DISTENSION [None]
  - ABDOMINAL PAIN [None]
  - ASCITES [None]
  - LARGE INTESTINE PERFORATION [None]
  - PERIDIVERTICULAR ABSCESS [None]
